FAERS Safety Report 16960007 (Version 1)
Quarter: 2019Q4

REPORT INFORMATION
  Report Type: Spontaneous
  Country: US (occurrence: US)
  Receive Date: 20191025
  Receipt Date: 20191025
  Transmission Date: 20200122
  Serious: No
  Sender: FDA-Public Use
  Company Number: US-SUNOVION-2019SUN004416

PATIENT
  Sex: Female
  Weight: 99.77 kg

DRUGS (2)
  1. LATUDA [Suspect]
     Active Substance: LURASIDONE HYDROCHLORIDE
     Indication: DEPRESSION
     Dosage: 80 MG, QD
     Route: 048
     Dates: start: 201810
  2. LATUDA [Suspect]
     Active Substance: LURASIDONE HYDROCHLORIDE
     Dosage: 100 MG (20 MG AT NIGHT ALONG WITH 80 G IN THE MORNING)
     Route: 048
     Dates: start: 201812

REACTIONS (2)
  - Depression [Not Recovered/Not Resolved]
  - Off label use [Unknown]
